FAERS Safety Report 4528089-X (Version None)
Quarter: 2004Q4

REPORT INFORMATION
  Report Type: 
  Country: None (occurrence: None)
  Receive Date: 20041124
  Receipt Date: 20040113
  Transmission Date: 20050328
  Serious: Yes (Life-Threatening, Disabling, Other)
  Sender: FDA-Public Use
  Company Number: 2003039261

PATIENT
  Age: 57 Year
  Sex: Male
  Weight: 102.5129 kg

DRUGS (11)
  1. TIKOSYN [Suspect]
     Indication: ATRIAL FIBRILLATION
     Dosage: 1000 MCG (BID), ORAL
     Route: 048
     Dates: start: 20020528
  2. WARFARIN SODIUM [Suspect]
     Indication: ILL-DEFINED DISORDER
  3. CELECOXIB (CELECOXIB) [Concomitant]
  4. DIGOXIN [Concomitant]
  5. AFRIN / OLD FORM/ (SORBITOL, AMINOACETIC ACID, PHENYLMERCURIC ACETATE, [Concomitant]
  6. CANDESARTAN CILEXETIL (CANDESARTAN CILEXETIL) [Concomitant]
  7. MUPIROCIN (MUPIROCIN) [Concomitant]
  8. FUROSEMIDE (FURSOSEMIDE) [Concomitant]
  9. BUDESONIDE (BUDESONIDE) [Concomitant]
  10. B-KOMPLEX ^LECIVA^ (PYRIDOXINE HYDROCHLORIDE, THIAMINE HYDROCHLORIDE, [Concomitant]
  11. ALPRAZOLAM [Concomitant]

REACTIONS (9)
  - BACK INJURY [None]
  - BLOOD CHOLESTEROL INCREASED [None]
  - CARDIAC FLUTTER [None]
  - COUGH [None]
  - HEART RATE IRREGULAR [None]
  - INTERNATIONAL NORMALISED RATIO INCREASED [None]
  - INTERVERTEBRAL DISC DEGENERATION [None]
  - PIGMENTATION DISORDER [None]
  - ULCER [None]
